FAERS Safety Report 19912575 (Version 1)
Quarter: 2021Q4

REPORT INFORMATION
  Report Type: Report from Study
  Country: GB (occurrence: GB)
  Receive Date: 20211004
  Receipt Date: 20211004
  Transmission Date: 20220303
  Serious: Yes (Hospitalization)
  Sender: FDA-Public Use
  Company Number: GB-ALNYLAM PHARMACEUTICALS, INC.-2018GBALNTTR020315

PATIENT
  Age: 54 Year
  Sex: Male
  Weight: 70.6 kg

DRUGS (4)
  1. PATISIRAN SODIUM [Suspect]
     Active Substance: PATISIRAN SODIUM
     Indication: Hereditary neuropathic amyloidosis
     Dosage: 22.55 MG EVERY 21 DAYS
     Route: 042
     Dates: start: 20171122, end: 20180328
  2. PATISIRAN SODIUM [Suspect]
     Active Substance: PATISIRAN SODIUM
     Dosage: 21.18 MG EVERY 21 DAYS
     Route: 042
     Dates: start: 20180510
  3. DIFLUNISAL [Concomitant]
     Active Substance: DIFLUNISAL
     Indication: Amyloidosis
     Dosage: 500 MG, BID
     Route: 048
     Dates: start: 2004
  4. OMEPRAZOLE [Concomitant]
     Active Substance: OMEPRAZOLE
     Indication: Amyloidosis
     Dosage: 20 MG, QD
     Route: 048
     Dates: start: 2004

REACTIONS (2)
  - Abdominal pain upper [Recovered/Resolved]
  - Gastroenteritis [Recovered/Resolved]

NARRATIVE: CASE EVENT DATE: 20180414
